FAERS Safety Report 17827190 (Version 1)
Quarter: 2020Q2

REPORT INFORMATION
  Report Type: Spontaneous
  Country: BE (occurrence: BE)
  Receive Date: 20200527
  Receipt Date: 20200527
  Transmission Date: 20200714
  Serious: Yes (Death)
  Sender: FDA-Public Use
  Company Number: BE-TEVA-2020-BE-1238800

PATIENT
  Sex: Female
  Weight: 92 kg

DRUGS (11)
  1. TEVAGRASTIM [Suspect]
     Active Substance: FILGRASTIM
     Indication: NEUTROPENIA
     Dosage: DOSAGE FORM: 1 INJECTION
     Route: 058
     Dates: start: 20200114
  2. SOLU-MEDROL [Concomitant]
     Active Substance: METHYLPREDNISOLONE SODIUM SUCCINATE
     Dosage: ON THE DAY OF THE CHEMOTHERAPY
     Route: 042
  3. D-CURE [Concomitant]
     Active Substance: CHOLECALCIFEROL
     Route: 065
  4. CARDIOASPIRINE [Concomitant]
     Active Substance: ASPIRIN
     Route: 065
  5. PROPRANOLOL [Concomitant]
     Active Substance: PROPRANOLOL HYDROCHLORIDE
     Route: 065
  6. STALEVO [Concomitant]
     Active Substance: CARBIDOPA\ENTACAPONE\LEVODOPA
     Route: 065
  7. BELLOZAL [Concomitant]
     Active Substance: BILASTINE
     Dosage: ON THE DAY OF THE CHEMOTHERAPY
     Route: 048
  8. LISINOPRIL. [Concomitant]
     Active Substance: LISINOPRIL
     Route: 065
  9. DEXAMETHASONE. [Concomitant]
     Active Substance: DEXAMETHASONE
     Indication: CHEMOTHERAPY SIDE EFFECT PROPHYLAXIS
     Route: 048
  10. PACLITAXEL. [Concomitant]
     Active Substance: PACLITAXEL
     Indication: BREAST CANCER FEMALE
     Route: 042
     Dates: start: 20191213, end: 20200110
  11. QUETIAPINE. [Concomitant]
     Active Substance: QUETIAPINE
     Route: 065

REACTIONS (1)
  - Hypersensitivity [Fatal]
